FAERS Safety Report 16650459 (Version 2)
Quarter: 2019Q4

REPORT INFORMATION
  Report Type: Spontaneous
  Country: JP (occurrence: JP)
  Receive Date: 20190731
  Receipt Date: 20191106
  Transmission Date: 20200122
  Serious: Yes (Hospitalization)
  Sender: FDA-Public Use
  Company Number: JP-ROCHE-2365640

PATIENT
  Age: 83 Year
  Sex: Male
  Weight: 45 kg

DRUGS (10)
  1. METHOTREXATE. [Concomitant]
     Active Substance: METHOTREXATE
     Indication: POLYMYALGIA RHEUMATICA
     Dosage: DOSE AMOUNT: 6 MG A WEEK
     Route: 048
     Dates: start: 20181109, end: 20190809
  2. ACTEMRA [Suspect]
     Active Substance: TOCILIZUMAB
     Indication: POLYMYALGIA RHEUMATICA
     Route: 041
     Dates: start: 20181113, end: 20190705
  3. PREDNISOLONE. [Concomitant]
     Active Substance: PREDNISOLONE
     Indication: POLYMYALGIA RHEUMATICA
     Route: 048
     Dates: start: 20181113, end: 20190814
  4. HARNAL [Concomitant]
     Active Substance: TAMSULOSIN HYDROCHLORIDE
     Route: 048
     Dates: end: 20190721
  5. ALOSENN [SENNOSIDE A+B] [Concomitant]
     Route: 065
     Dates: end: 20190721
  6. CADUET [Concomitant]
     Active Substance: AMLODIPINE BESYLATE\ATORVASTATIN CALCIUM
     Route: 048
     Dates: end: 20190721
  7. MAGNESIUM OXIDE. [Concomitant]
     Active Substance: MAGNESIUM OXIDE
     Route: 048
     Dates: end: 20190814
  8. MICAMLO [Concomitant]
     Active Substance: AMLODIPINE BESYLATE\TELMISARTAN
     Route: 048
     Dates: end: 20190721
  9. ARTIST [Concomitant]
     Active Substance: CARVEDILOL
     Route: 048
     Dates: end: 20190721
  10. TAKECAB [Concomitant]
     Active Substance: VONOPRAZAN FUMURATE
     Route: 048
     Dates: end: 20190721

REACTIONS (2)
  - Off label use [Unknown]
  - Amyotrophic lateral sclerosis [Not Recovered/Not Resolved]

NARRATIVE: CASE EVENT DATE: 201901
